FAERS Safety Report 4325869-0 (Version None)
Quarter: 2004Q1

REPORT INFORMATION
  Report Type: 
  Country: None (occurrence: None)
  Receive Date: 20040323
  Receipt Date: 20040309
  Transmission Date: 20041129
  Serious: Yes (Hospitalization, Other)
  Sender: FDA-Public Use
  Company Number: US-JNJFOC-20040202654

PATIENT
  Age: 28 Year
  Sex: Male
  Weight: 97.5234 kg

DRUGS (20)
  1. REMICADE [Suspect]
     Indication: CROHN'S DISEASE
     Dosage: 500 MG, INTRAVENOUS
     Route: 042
     Dates: start: 20021212, end: 20021212
  2. ATIVAN [Concomitant]
  3. AMITRIPTYLINE HCL [Concomitant]
  4. LOPERAMIDE HCL [Concomitant]
  5. CODEINE (CODEINE) [Concomitant]
  6. PENTASA [Concomitant]
  7. ZANTAC [Concomitant]
  8. NEXIUM [Concomitant]
  9. LIBRAX [Concomitant]
  10. SONATA [Concomitant]
  11. LEVSIN (HYOSCYAMINE SULFATE) [Concomitant]
  12. IMITREX [Concomitant]
  13. AMBIEN [Concomitant]
  14. VICODIN [Concomitant]
  15. COMPAZINE [Concomitant]
  16. FLEXERIL [Concomitant]
  17. VIOXX [Concomitant]
  18. METHOTREXATE [Concomitant]
  19. FOLIC ACID [Concomitant]
  20. CELEBREX [Concomitant]

REACTIONS (6)
  - BACK PAIN [None]
  - BODY TEMPERATURE INCREASED [None]
  - CHILLS [None]
  - HEADACHE [None]
  - NAUSEA [None]
  - TREMOR [None]
